FAERS Safety Report 10256797 (Version 3)
Quarter: 2014Q4

REPORT INFORMATION
  Report Type: Spontaneous
  Country: US (occurrence: US)
  Receive Date: 20140624
  Receipt Date: 20141118
  Transmission Date: 20150528
  Serious: Yes (Other)
  Sender: FDA-Public Use
  Company Number: US-MYLANLABS-2014S1014268

PATIENT

DRUGS (12)
  1. DULERA [Concomitant]
     Active Substance: FORMOTEROL FUMARATE DIHYDRATE\MOMETASONE FUROATE
     Indication: CHRONIC OBSTRUCTIVE PULMONARY DISEASE
     Dosage: 2 , BID
     Route: 048
  2. PEPPERMINT                         /01649801/ [Concomitant]
     Dosage: 1 CAPSULE, TID
  3. INHALANT [Concomitant]
     Dosage: UNK
  4. CALCIUM CHLORIDE. [Concomitant]
     Active Substance: CALCIUM CHLORIDE
     Dosage: UNK
  5. SPIRIVA [Concomitant]
     Active Substance: TIOTROPIUM BROMIDE MONOHYDRATE
     Indication: CHRONIC OBSTRUCTIVE PULMONARY DISEASE
     Dosage: 1 PUFF, AM
  6. LIDODERM [Concomitant]
     Active Substance: LIDOCAINE
     Dosage: UNK, PRN
  7. EPIPEN [Concomitant]
     Active Substance: EPINEPHRINE
     Dosage: UNK, PRN
  8. VENTOLIN [Concomitant]
     Active Substance: ALBUTEROL SULFATE
     Indication: CHRONIC OBSTRUCTIVE PULMONARY DISEASE
     Dosage: UNK
  9. CITRUCEL [Concomitant]
     Active Substance: METHYLCELLULOSE (4000 MPA.S)
     Dosage: UNK
  10. ALBUTEROL SULFATE. [Concomitant]
     Active Substance: ALBUTEROL SULFATE
     Dosage: UNK, PRN
  11. BUSPIRONE HYDROCHLORIDE TABLETS, USP [Suspect]
     Active Substance: BUSPIRONE HYDROCHLORIDE
     Indication: ANXIETY
     Dosage: 10 MG,BID
     Route: 048
     Dates: start: 20140404, end: 201406
  12. NYSTATIN. [Concomitant]
     Active Substance: NYSTATIN
     Dosage: UNK, PRN

REACTIONS (15)
  - Haemorrhage subcutaneous [Recovering/Resolving]
  - Blood viscosity decreased [Recovered/Resolved]
  - Dyskinesia [Recovering/Resolving]
  - Blood pressure decreased [Recovering/Resolving]
  - Vision blurred [Recovering/Resolving]
  - Nervousness [Recovering/Resolving]
  - Dysphonia [Recovering/Resolving]
  - Dyspnoea [Recovering/Resolving]
  - Mucosal haemorrhage [Recovering/Resolving]
  - Hyperchlorhydria [Recovering/Resolving]
  - Heart rate irregular [Recovering/Resolving]
  - Memory impairment [Recovering/Resolving]
  - Epistaxis [Recovered/Resolved]
  - Haematochezia [Recovering/Resolving]
  - Insomnia [Recovering/Resolving]

NARRATIVE: CASE EVENT DATE: 2014
